FAERS Safety Report 10399538 (Version 1)
Quarter: 2014Q3

REPORT INFORMATION
  Report Type: Spontaneous
  Country: GB (occurrence: None)
  Receive Date: 20140819
  Receipt Date: 20140819
  Transmission Date: 20150326
  Serious: Yes (Hospitalization)
  Sender: FDA-Public Use
  Company Number: AUR-APL-2014-08197

PATIENT
  Age: 88 Year
  Sex: Female

DRUGS (10)
  1. ASPIRIN (ACETYLSALICYLIC ACID) UNKNOWN [Concomitant]
  2. DOCUSATE (DOCUSATE) UNKNOWN [Concomitant]
  3. SULFASALAZINE (SULFASALAZINE) UNKNOWN [Concomitant]
  4. ATORVASTATIN (ATORVASTATIN) UNKNOWN [Concomitant]
     Active Substance: ATORVASTATIN
  5. NEFOPAM (NEFOPAM) UNKNOWN [Concomitant]
  6. SENNA /00142201/ (SENNA ALEXANDRINA) UNKNOWN [Concomitant]
  7. LOSARTAN [Suspect]
     Active Substance: LOSARTAN
     Indication: HYPERTENSION
     Dosage: 100 MG, ONCE A DAY, ORAL
     Route: 048
     Dates: end: 20140628
  8. MIRTAZAPINE. [Suspect]
     Active Substance: MIRTAZAPINE
     Indication: PRODUCT USED FOR UNKNOWN INDICATION
     Dosage: 15 MG, ONCE A DAY, ORAL
     Route: 048
     Dates: start: 20140630, end: 20140702
  9. AMLODIPINE [Concomitant]
     Active Substance: AMLODIPINE BESYLATE
  10. PARACETAMOL (PARACETAMOL) UNKNOWN, UNKNOWN [Concomitant]
     Active Substance: ACETAMINOPHEN

REACTIONS (4)
  - Inappropriate antidiuretic hormone secretion [None]
  - Hypertension [None]
  - Hyponatraemia [None]
  - Off label use [None]

NARRATIVE: CASE EVENT DATE: 20140628
